FAERS Safety Report 10420873 (Version 1)
Quarter: 2014Q3

REPORT INFORMATION
  Report Type: Spontaneous
  Country: US (occurrence: None)
  Receive Date: 20140829
  Receipt Date: 20140829
  Transmission Date: 20150326
  Serious: Yes (Life-Threatening, Hospitalization)
  Sender: FDA-Public Use
  Company Number: None

PATIENT
  Age: 66 Year
  Sex: Female

DRUGS (1)
  1. SENSIPAR [Suspect]
     Active Substance: CINACALCET HYDROCHLORIDE
     Indication: HYPERCALCAEMIA
     Dosage: 1 TABLET M,W,F ORAL
     Route: 048
     Dates: start: 20130625

REACTIONS (6)
  - Atrial fibrillation [None]
  - Abdominal pain [None]
  - Oedema [None]
  - Clostridium difficile infection [None]
  - Cellulitis [None]
  - Hypokalaemia [None]

NARRATIVE: CASE EVENT DATE: 20140813
